FAERS Safety Report 7220737-9 (Version None)
Quarter: 2011Q1

REPORT INFORMATION
  Report Type: 
  Country: None (occurrence: None)
  Receive Date: 20110111
  Receipt Date: 20101230
  Transmission Date: 20110831
  Serious: Yes (Hospitalization)
  Sender: FDA-Public Use
  Company Number: IT-GILEAD-2011-0034820

PATIENT
  Sex: Male
  Weight: 86 kg

DRUGS (12)
  1. AMBRISENTAN [Suspect]
     Indication: IDIOPATHIC PULMONARY FIBROSIS
     Route: 048
     Dates: start: 20101108, end: 20101205
  2. DELTACORTENE [Concomitant]
     Indication: IDIOPATHIC PULMONARY FIBROSIS
     Dates: start: 20041201
  3. ACETYLCYSTEINE [Concomitant]
     Indication: IDIOPATHIC PULMONARY FIBROSIS
     Dates: start: 20041201
  4. ATORVASTATIN [Concomitant]
     Indication: HYPERCHOLESTEROLAEMIA
     Dates: start: 20080401
  5. GLYBURIDE AND METFORMIN HYDROCHLORIDE [Concomitant]
     Indication: DIABETES MELLITUS
     Dates: start: 20080401
  6. LEVODROPROPIZINA [Concomitant]
     Indication: COUGH
     Dates: start: 20080401
  7. CARVEDILOL [Concomitant]
     Indication: HYPERTENSION
     Dates: start: 20080401
  8. CANRENOATE [Concomitant]
     Indication: HYPERTENSION
     Dates: start: 20080401
  9. SUCRALFATO [Concomitant]
     Indication: PROPHYLAXIS AGAINST GASTROINTESTINAL ULCER
     Dates: start: 20080401
  10. WARFARIN [Concomitant]
     Indication: ATRIAL FIBRILLATION
     Dates: start: 19980101
  11. ALENDRONIC ACID [Concomitant]
     Indication: OSTEOPOROSIS PROPHYLAXIS
     Dates: start: 20080401
  12. PANTOPRAZOLE [Concomitant]
     Indication: PROPHYLAXIS AGAINST GASTROINTESTINAL ULCER
     Dates: start: 20080401

REACTIONS (1)
  - IDIOPATHIC PULMONARY FIBROSIS [None]
